FAERS Safety Report 20244154 (Version 1)
Quarter: 2021Q4

REPORT INFORMATION
  Report Type: Spontaneous
  Country: US (occurrence: US)
  Receive Date: 20211229
  Receipt Date: 20211229
  Transmission Date: 20220304
  Serious: Yes (Other)
  Sender: FDA-Public Use
  Company Number: US-COOPERSURGICAL, INC.-US-2021CPS002732

PATIENT
  Sex: Female
  Weight: 68.98 kg

DRUGS (1)
  1. PARAGARD T 380A [Suspect]
     Active Substance: COPPER
     Indication: Contraception
     Dosage: UNK
     Route: 015
     Dates: start: 20210722, end: 20210817

REACTIONS (6)
  - Tissue infiltration [Recovered/Resolved]
  - Tissue discolouration [Unknown]
  - Sensation of foreign body [Unknown]
  - Muscle spasms [Unknown]
  - Pain [Unknown]
  - Device expulsion [Recovered/Resolved]

NARRATIVE: CASE EVENT DATE: 20210101
